FAERS Safety Report 14264697 (Version 5)
Quarter: 2018Q4

REPORT INFORMATION
  Report Type: Spontaneous
  Country: FR (occurrence: FR)
  Receive Date: 20171208
  Receipt Date: 20181023
  Transmission Date: 20190204
  Serious: Yes (Hospitalization, Other)
  Sender: FDA-Public Use
  Company Number: FR-TEVA-2017-FR-829254

PATIENT
  Age: 63 Year
  Sex: Male

DRUGS (3)
  1. METHOTREXATE. [Suspect]
     Active Substance: METHOTREXATE
     Indication: RHEUMATOID ARTHRITIS
     Dosage: 20MG/WEEK
     Route: 065
  2. PREDNISONE. [Suspect]
     Active Substance: PREDNISONE
     Indication: RHEUMATOID ARTHRITIS
     Route: 065
  3. CORTIVAZOL [Suspect]
     Active Substance: CORTIVAZOL
     Indication: TENOSYNOVITIS
     Dosage: 120 UNK, UNK
     Route: 065
     Dates: start: 201312, end: 201312

REACTIONS (5)
  - Phaeohyphomycosis [Recovered/Resolved]
  - Skin warm [Recovered/Resolved]
  - Pain [Recovered/Resolved]
  - Tenosynovitis [Recovered/Resolved]
  - Subcutaneous abscess [Recovered/Resolved]

NARRATIVE: CASE EVENT DATE: 201304
